FAERS Safety Report 7214134-X (Version None)
Quarter: 2011Q1

REPORT INFORMATION
  Report Type: 
  Country: None (occurrence: None)
  Receive Date: 20110107
  Receipt Date: 20101224
  Transmission Date: 20110831
  Serious: Yes (Hospitalization, Other)
  Sender: FDA-Public Use
  Company Number: US-CELGENEUS-163-21880-10123170

PATIENT
  Sex: Male

DRUGS (25)
  1. PAROXETINE [Concomitant]
     Route: 065
     Dates: start: 20101118
  2. CIPROFLOXACIN [Concomitant]
     Route: 065
     Dates: start: 20101114
  3. LANTUS [Concomitant]
     Route: 065
     Dates: start: 20101102
  4. DEXAMETHASONE [Concomitant]
     Route: 065
     Dates: start: 20101030
  5. AMLODIPINE BESYLATE [Concomitant]
     Route: 065
     Dates: start: 20100929
  6. OXYCODONE HCL AND ACETAMINOPHEN [Concomitant]
     Dosage: 10MG/325ML
     Route: 065
     Dates: start: 20101209
  7. OXYCODONE [Concomitant]
     Route: 065
     Dates: start: 20101027
  8. POTASSIUM D.L. [Concomitant]
     Route: 065
     Dates: start: 20101214
  9. FUROSEMIDE [Concomitant]
     Route: 065
     Dates: start: 20101209
  10. CYCLOBENZAPRINE [Concomitant]
     Route: 065
     Dates: start: 20101110
  11. HUMALOG [Concomitant]
     Route: 065
     Dates: start: 20101029
  12. GENERLAC [Concomitant]
     Dosage: 10GM/15ML
     Route: 065
     Dates: start: 20101027
  13. SENNA S [Concomitant]
     Dosage: 8.6-50MG
     Route: 065
     Dates: start: 20101026
  14. OXYCODONE [Concomitant]
     Route: 065
     Dates: start: 20101114
  15. PROMETHAZINE [Concomitant]
     Route: 065
     Dates: start: 20101101
  16. AVODART [Concomitant]
     Route: 065
     Dates: start: 20101016
  17. REVLIMID [Suspect]
     Indication: MULTIPLE MYELOMA
     Route: 048
     Dates: start: 20101103
  18. LISINOPRIL [Concomitant]
     Route: 065
     Dates: start: 20100412
  19. OXYCODONE [Concomitant]
     Route: 065
     Dates: start: 20101209
  20. LIPITOR [Concomitant]
     Route: 065
     Dates: start: 20100928
  21. VITAMIN D [Concomitant]
     Route: 065
     Dates: start: 20101119
  22. ACYCLOVIR [Concomitant]
     Route: 065
     Dates: start: 20101026
  23. ALLOPURINOL [Concomitant]
     Route: 065
     Dates: start: 20101026
  24. PROCHLORPERAZINE [Concomitant]
     Route: 065
     Dates: start: 20101029
  25. GLIMEPIRIDE [Concomitant]
     Route: 065
     Dates: start: 20100928

REACTIONS (5)
  - DIZZINESS [None]
  - ANAEMIA [None]
  - CONVULSION [None]
  - ORTHOSTATIC HYPOTENSION [None]
  - LOSS OF CONSCIOUSNESS [None]
